FAERS Safety Report 5216157-9 (Version None)
Quarter: 2007Q1

REPORT INFORMATION
  Report Type: 
  Country: None (occurrence: None)
  Receive Date: 20070118
  Receipt Date: 20070105
  Transmission Date: 20070707
  Serious: Yes (Hospitalization)
  Sender: FDA-Public Use
  Company Number: FABR-11811

PATIENT
  Age: 52 Year
  Sex: Female
  Weight: 61 kg

DRUGS (16)
  1. FABRAZYME [Suspect]
     Indication: FABRY'S DISEASE
     Dosage: 70 MG Q2WKS IV
     Route: 042
     Dates: start: 20030620
  2. TACROLIMUS [Concomitant]
  3. VALGANCICLOVIR HCL [Concomitant]
  4. NPH INSULIN [Concomitant]
  5. SEPTRA [Concomitant]
  6. GABAPENTIN [Concomitant]
  7. LISPRO [Concomitant]
  8. LORATADINE [Concomitant]
  9. PREDNISONE [Concomitant]
  10. FLUCONAZOLE [Concomitant]
  11. DIGOXIN [Concomitant]
  12. PROCRIT [Concomitant]
  13. LANSOPRAZOLE [Concomitant]
  14. LASIX [Concomitant]
  15. METOPROLOL TARTRATE [Concomitant]
  16. MYFORTIC [Concomitant]

REACTIONS (25)
  - ABDOMINAL PAIN [None]
  - ANGINA PECTORIS [None]
  - ANXIETY [None]
  - BLOOD CHOLESTEROL INCREASED [None]
  - BLOOD TRIGLYCERIDES INCREASED [None]
  - CHEST PAIN [None]
  - CHILLS [None]
  - DEPRESSION [None]
  - DIABETES MELLITUS [None]
  - DISEASE PROGRESSION [None]
  - DRUG TOXICITY [None]
  - DYSPNOEA [None]
  - FATIGUE [None]
  - HYPERSENSITIVITY [None]
  - HYPERTENSION [None]
  - INFUSION RELATED REACTION [None]
  - NEUROPATHY [None]
  - OEDEMA PERIPHERAL [None]
  - PAIN [None]
  - PULMONARY ARTERIAL PRESSURE INCREASED [None]
  - RENAL FAILURE [None]
  - RENAL TRANSPLANT [None]
  - RESTLESSNESS [None]
  - STOMACH DISCOMFORT [None]
  - VENTRICULAR HYPERTROPHY [None]
